FAERS Safety Report 25198438 (Version 1)
Quarter: 2025Q2

REPORT INFORMATION
  Report Type: Spontaneous
  Country: US (occurrence: None)
  Receive Date: 20250414
  Receipt Date: 20250414
  Transmission Date: 20250717
  Serious: No
  Sender: FDA-CTU
  Company Number: None

PATIENT
  Age: 85 Year
  Sex: Male

DRUGS (11)
  1. ERIVEDGE [Suspect]
     Active Substance: VISMODEGIB
     Indication: Basal cell carcinoma
     Dosage: FREQUENCY : DAILY;?
     Route: 048
     Dates: start: 20241030
  2. Aspirin 81 mg EC Tablet [Concomitant]
  3. Biscadoyl 5mg EC Tablet [Concomitant]
  4. CELECOXIB [Concomitant]
     Active Substance: CELECOXIB
  5. Folic tablet [Concomitant]
  6. GABAPENTIN [Concomitant]
     Active Substance: GABAPENTIN
  7. LISINOPRIL [Concomitant]
     Active Substance: LISINOPRIL
  8. MELATONIN [Concomitant]
     Active Substance: MELATONIN
  9. METOPROLOL TARTRATE [Concomitant]
     Active Substance: METOPROLOL TARTRATE
  10. MIRALAX [Concomitant]
     Active Substance: POLYETHYLENE GLYCOL 3350
  11. Pepcid tablet [Concomitant]

REACTIONS (3)
  - Weight decreased [None]
  - Therapy interrupted [None]
  - Oral neoplasm [None]

NARRATIVE: CASE EVENT DATE: 20250101
